FAERS Safety Report 18274569 (Version 2)
Quarter: 2020Q4

REPORT INFORMATION
  Report Type: Spontaneous
  Country: CZ (occurrence: CZ)
  Receive Date: 20200916
  Receipt Date: 20201006
  Transmission Date: 20210113
  Serious: Yes (Hospitalization)
  Sender: FDA-Public Use
  Company Number: CZ-JNJFOC-20200916797

PATIENT
  Age: 63 Year
  Sex: Female

DRUGS (8)
  1. STELARA [Suspect]
     Active Substance: USTEKINUMAB
  2. EUTHYROX [Concomitant]
     Active Substance: LEVOTHYROXINE SODIUM
  3. CALTRATE [Concomitant]
     Active Substance: CALCIUM CARBONATE
  4. STELARA [Suspect]
     Active Substance: USTEKINUMAB
     Indication: PSORIASIS
     Route: 058
  5. CEPHALEN [Concomitant]
  6. BONVIVA [Concomitant]
     Active Substance: IBANDRONATE SODIUM
  7. TENAXUM [Concomitant]
     Active Substance: RILMENIDINE
  8. ALGIFEN                            /06430701/ [Concomitant]
     Indication: MIGRAINE

REACTIONS (3)
  - Upper respiratory tract infection [Unknown]
  - Dermatitis allergic [Unknown]
  - Psoriasis [Recovered/Resolved]

NARRATIVE: CASE EVENT DATE: 202008
